FAERS Safety Report 9266899 (Version 2)
Quarter: 2013Q2

REPORT INFORMATION
  Report Type: Spontaneous
  Country: US (occurrence: US)
  Receive Date: 20130502
  Receipt Date: 20130529
  Transmission Date: 20140414
  Serious: Yes (Hospitalization, Other)
  Sender: FDA-Public Use
  Company Number: US-JNJFOC-20130415827

PATIENT
  Age: 69 Year
  Sex: Female

DRUGS (5)
  1. ULTRACET [Suspect]
     Indication: BACK PAIN
     Dosage: 2 TABLETS EVERY 4-6 HOURS AS NEEDED
     Route: 048
     Dates: start: 2008, end: 201012
  2. METFORMIN [Concomitant]
     Indication: DIABETES MELLITUS
     Route: 065
  3. AMARYL [Concomitant]
     Indication: DIABETES MELLITUS
     Route: 065
  4. LEVEMIR [Concomitant]
     Indication: DIABETES MELLITUS
     Route: 065
  5. DIOVAN [Concomitant]
     Indication: HYPERTENSION
     Route: 065

REACTIONS (2)
  - Hepatic cirrhosis [Not Recovered/Not Resolved]
  - Abdominal pain upper [Unknown]
